FAERS Safety Report 20068491 (Version 1)
Quarter: 2021Q4

REPORT INFORMATION
  Report Type: Spontaneous
  Country: US (occurrence: US)
  Receive Date: 20211115
  Receipt Date: 20211115
  Transmission Date: 20220303
  Serious: Yes (Other)
  Sender: FDA-Public Use
  Company Number: US-ORGANON-O2111USA000727

PATIENT
  Age: 2 Year
  Sex: Female
  Weight: 8.5 kg

DRUGS (1)
  1. COZAAR [Suspect]
     Active Substance: LOSARTAN POTASSIUM
     Dosage: UNK
     Route: 064

REACTIONS (2)
  - End stage renal disease [Unknown]
  - Foetal exposure during pregnancy [Unknown]
